FAERS Safety Report 9033021 (Version 3)
Quarter: 2013Q3

REPORT INFORMATION
  Report Type: Spontaneous
  Country: US (occurrence: US)
  Receive Date: 20130128
  Receipt Date: 20130806
  Transmission Date: 20140515
  Serious: Yes (Other)
  Sender: FDA-Public Use
  Company Number: PHEH2013US002175

PATIENT
  Sex: Female

DRUGS (42)
  1. TEKTURNA [Suspect]
     Indication: HYPERTENSION
     Dosage: 300 MG, QD
     Route: 048
  2. PREDNISONE [Suspect]
  3. ALBUTEROL [Concomitant]
     Dosage: UNK UKN, PRN
  4. ADVAIR [Concomitant]
  5. METHOCARBAMOL [Concomitant]
     Dosage: 500 MG, QD
  6. PROCHLORPERAZINE [Concomitant]
     Dosage: 10 MG, UNK
  7. LORAZEPAN [Concomitant]
     Dosage: 1 MG, TID
  8. ZOLPIDEM TARTRATE [Concomitant]
     Dosage: 10 MG, WHEN NEEDED.
  9. BISACODYL [Concomitant]
     Dosage: 5 MG, TID
  10. DOCUSATE SODIUM [Concomitant]
     Dosage: 100 MG, UNK
  11. RANITIDINE [Concomitant]
     Dosage: 150 MG, QD
  12. ATROPINE [Concomitant]
     Dosage: 2 DF (5 MG), Q4 OR PRN
     Route: 060
  13. NIFEDIPINE [Concomitant]
     Dosage: 900 MG, QD
  14. COREG [Concomitant]
     Dosage: 25 MG, BID
  15. NYSTATIN [Concomitant]
     Dosage: 5 MG, QID
  16. ACETAMIDE [Concomitant]
     Dosage: 650 MG, UNK
  17. LAXATIVE [Concomitant]
  18. ARTIFICIAL TEARS                   /00880201/ [Concomitant]
  19. DURAGESIC [Concomitant]
     Dosage: 75 PATCHES
  20. QVAR [Concomitant]
     Dosage: 8 MG, UNK
  21. CLARITIN [Concomitant]
     Dosage: 10 MG, QD
  22. PRILOSEC [Concomitant]
     Dosage: 20 MG, BID
  23. PRILOSEC [Concomitant]
     Dosage: 20 MG, QD
  24. VITAMIN D [Concomitant]
     Dosage: 50000 U, QW
  25. VITAMIN K [Concomitant]
  26. DILAUDID [Concomitant]
  27. ROBAXIN [Concomitant]
     Dosage: 500 MG, TID
  28. ZANTAC [Concomitant]
     Dosage: 150 MG, QD
  29. PROCARDIA XL [Concomitant]
     Dosage: 90 MG, QD
  30. LIPITOR [Concomitant]
     Dosage: 20 MG, QD
  31. HALDOL [Concomitant]
     Dosage: 2 MG/ML, QID/PRN
  32. ROBITUSSIN DM [Concomitant]
     Dosage: UNK UKN, PRN
  33. VENTOLIN CR [Concomitant]
     Dosage: 2 DF, TID
  34. FLOVENT [Concomitant]
     Dosage: 2 DF, BID
  35. COLACE [Concomitant]
  36. DULCOLAX [Concomitant]
  37. MIRALAX [Concomitant]
  38. NATURAL BALANCE TEARS [Concomitant]
     Dosage: UNK UKN, PRN
  39. POLYVINYL ALCOHOL [Concomitant]
     Dosage: 1 DF (1.4%), QD (ONE DROP IN EACH EYE)
  40. PITAVASTATIN CALCIUM [Concomitant]
     Dosage: 1 MG, QD/PM
  41. PRENATAL VITAMINS [Concomitant]
  42. ATORVASTATIN [Concomitant]

REACTIONS (18)
  - Rheumatoid arthritis [Unknown]
  - Liver disorder [Unknown]
  - Renal disorder [Unknown]
  - Renal cyst [Unknown]
  - Lung neoplasm malignant [Unknown]
  - Cushingoid [Unknown]
  - Scleroderma [Unknown]
  - Asthma [Unknown]
  - Oesophageal disorder [Unknown]
  - Osteoporosis [Unknown]
  - Rib fracture [Unknown]
  - Foot fracture [Unknown]
  - Alopecia [Unknown]
  - Swelling [Unknown]
  - Mental impairment [Unknown]
  - Aphasia [Unknown]
  - Hypersensitivity [Unknown]
  - Feeling abnormal [Unknown]
